FAERS Safety Report 20076164 (Version 1)
Quarter: 2021Q4

REPORT INFORMATION
  Report Type: Spontaneous
  Country: US (occurrence: US)
  Receive Date: 20211116
  Receipt Date: 20211116
  Transmission Date: 20220303
  Serious: No
  Sender: FDA-Public Use
  Company Number: US-NOVOPROD-795034

PATIENT
  Age: 34 Year
  Sex: Female

DRUGS (1)
  1. TRESIBA [Suspect]
     Active Substance: INSULIN DEGLUDEC
     Indication: Product used for unknown indication
     Dosage: UNK
     Route: 058
     Dates: start: 20210309

REACTIONS (3)
  - Malaise [Not Recovered/Not Resolved]
  - Incorrect dose administered [Unknown]
  - Product communication issue [Unknown]

NARRATIVE: CASE EVENT DATE: 20210310
